FAERS Safety Report 24954262 (Version 1)
Quarter: 2025Q1

REPORT INFORMATION
  Report Type: Spontaneous
  Country: US (occurrence: US)
  Receive Date: 20250211
  Receipt Date: 20250211
  Transmission Date: 20250408
  Serious: No
  Sender: NOBELPHARMA AMERICA, LLC
  Company Number: US-Nobelpharma America, LLC-NPA-2025-00185

PATIENT
  Sex: Male

DRUGS (5)
  1. HYFTOR [Suspect]
     Active Substance: SIROLIMUS
     Indication: Benign neoplasm
     Dosage: APPLY 1 APPLICATION TOPICALLY TWICE DAILY
     Route: 061
     Dates: start: 20230912
  2. AZITHROMYCIN [Concomitant]
     Active Substance: AZITHROMYCIN
  3. BASAGLAR [Concomitant]
     Active Substance: INSULIN GLARGINE
  4. MONTELUKAST SODIUM [Concomitant]
     Active Substance: MONTELUKAST SODIUM
  5. ZONISAMIDE [Concomitant]
     Active Substance: ZONISAMIDE

REACTIONS (2)
  - Rash macular [Unknown]
  - Off label use [Unknown]
